FAERS Safety Report 4804010-1 (Version None)
Quarter: 2005Q3

REPORT INFORMATION
  Report Type: 
  Country: None (occurrence: None)
  Receive Date: 20050920
  Receipt Date: 20050801
  Transmission Date: 20060218
  Serious: No
  Sender: FDA-Public Use
  Company Number: US-YAMANOUCHI-YPA20050413

PATIENT
  Age: 82 Year
  Sex: Female
  Weight: 52.1637 kg

DRUGS (7)
  1. VESICARE [Suspect]
     Indication: INCONTINENCE
     Dosage: 5 MG QD PO
     Route: 048
     Dates: start: 20050720
  2. TRANDATE [Concomitant]
  3. LIPITOR [Concomitant]
  4. CARDURA [Concomitant]
  5. FOSAMAX [Concomitant]
  6. VIACTIV [Concomitant]
  7. CALTRATE + D [Concomitant]

REACTIONS (8)
  - DRUG INEFFECTIVE [None]
  - DRY MOUTH [None]
  - DYSPEPSIA [None]
  - PAIN [None]
  - PAIN IN EXTREMITY [None]
  - POLLAKIURIA [None]
  - URINE FLOW DECREASED [None]
  - VISION BLURRED [None]
